FAERS Safety Report 6399531-7 (Version None)
Quarter: 2009Q4

REPORT INFORMATION
  Report Type: 
  Country: None (occurrence: None)
  Receive Date: 20091014
  Receipt Date: 20091009
  Transmission Date: 20100525
  Serious: Yes (Death, Life-Threatening, Other)
  Sender: FDA-Public Use
  Company Number: JP-BAYER-200912892BYL

PATIENT
  Age: 46 Year
  Sex: Male
  Weight: 69 kg

DRUGS (14)
  1. NEXAVAR [Suspect]
     Indication: HEPATIC NEOPLASM MALIGNANT
     Dosage: TOTAL DAILY DOSE: 800 MG  UNIT DOSE: 200 MG
     Route: 048
     Dates: start: 20090603, end: 20090728
  2. NEXAVAR [Suspect]
     Dosage: UNIT DOSE: 200 MG
     Route: 048
     Dates: start: 20090629, end: 20090826
  3. BARACLUDE [Concomitant]
     Dosage: BEFORE NEXAVAR ADMINISTRATION
     Route: 048
     Dates: start: 20061225
  4. GLAKAY [Concomitant]
     Dosage: BEFORE NEXAVAR ADMINISTRATION
     Route: 048
     Dates: start: 20061004
  5. URSO 250 [Concomitant]
     Dosage: BEFORE NEXAVAR ADMINISTRATION
     Route: 048
     Dates: start: 20020420
  6. AMINOLEBAN EN [Concomitant]
     Dosage: BEFORE NEXAVAR ADMINISTRATION
     Route: 048
     Dates: start: 20081210
  7. OMEPRAL [Concomitant]
     Dosage: BEFORE NEXAVAR ADMINISTRATION
     Route: 048
     Dates: start: 20090110
  8. DIART [Concomitant]
     Dosage: BEFORE NEXAVAR ADMINISTRATION
     Route: 048
     Dates: start: 20090110
  9. ALDACTONE [Concomitant]
     Dosage: BEFORE NEXAVAR ADMINISTRATION
     Route: 048
     Dates: start: 20090312
  10. NAIXAN [Concomitant]
     Dosage: BEFORE NEXAVAR ADMINISTRATION
     Route: 048
     Dates: start: 20081202
  11. NEO-MINOPHAGEN C [Concomitant]
     Dosage: BEFORE NEXAVAR ADMINISTRATION
     Route: 042
     Dates: start: 20090113
  12. VITANEURIN [Concomitant]
     Dosage: BEFORE NEXAVAR ADMINISTRATION
     Route: 042
     Dates: start: 20090509
  13. LIVERES [Concomitant]
     Dosage: BEFORE NEXAVAR ADMINISTRATION
     Route: 042
     Dates: start: 20090509
  14. LASIX [Concomitant]
     Dosage: BEFORE NEXAVAR ADMINISTRATION
     Route: 042
     Dates: start: 20090514

REACTIONS (7)
  - ALOPECIA [None]
  - ANAEMIA [None]
  - HAEMOBILIA [None]
  - HEPATIC FUNCTION ABNORMAL [None]
  - HEPATIC NEOPLASM MALIGNANT [None]
  - JAUNDICE [None]
  - RASH [None]
